FAERS Safety Report 7567995-9 (Version None)
Quarter: 2011Q2

REPORT INFORMATION
  Report Type: 
  Country: None (occurrence: None)
  Receive Date: 20110616
  Receipt Date: 20110606
  Transmission Date: 20111010
  Serious: Yes (Other)
  Sender: FDA-Public Use
  Company Number: GB-GDP-11410801

PATIENT
  Sex: Male

DRUGS (1)
  1. METROGEL [Suspect]
     Indication: ROSACEA
     Dosage: 1 DF, QD, TOPICAL
     Route: 061

REACTIONS (1)
  - EPILEPSY [None]
